FAERS Safety Report 4292615-9 (Version None)
Quarter: 2004Q1

REPORT INFORMATION
  Report Type: 
  Country: None (occurrence: None)
  Receive Date: 20040126
  Receipt Date: 20031021
  Transmission Date: 20041129
  Serious: No
  Sender: FDA-Public Use
  Company Number: USA031050438

PATIENT
  Age: 66 Year
  Sex: Female
  Weight: 102 kg

DRUGS (1)
  1. FORTEO [Suspect]
     Indication: OSTEOPOROSIS
     Dates: start: 20030928

REACTIONS (1)
  - INJECTION SITE BURNING [None]
